FAERS Safety Report 9625712 (Version 1)
Quarter: 2013Q4

REPORT INFORMATION
  Report Type: Spontaneous
  Country: US (occurrence: None)
  Receive Date: 20131015
  Receipt Date: 20131015
  Transmission Date: 20140711
  Serious: No
  Sender: FDA-Public Use
  Company Number: None

PATIENT
  Age: 31 Year
  Sex: Female

DRUGS (1)
  1. PARAGARD [Suspect]

REACTIONS (6)
  - Muscle spasms [None]
  - Menorrhagia [None]
  - Thrombosis [None]
  - Acne [None]
  - Scar [None]
  - Libido decreased [None]
